FAERS Safety Report 25094738 (Version 1)
Quarter: 2025Q1

REPORT INFORMATION
  Report Type: Spontaneous
  Country: US (occurrence: None)
  Receive Date: 20250318
  Receipt Date: 20250318
  Transmission Date: 20250408
  Serious: Yes (Life-Threatening, Other)
  Sender: FDA-CTU
  Company Number: None

PATIENT
  Age: 42 Year
  Sex: Female

DRUGS (4)
  1. CYANOCOBALAMIN\TOPIRAMATE [Suspect]
     Active Substance: CYANOCOBALAMIN\TOPIRAMATE
     Indication: Weight decreased
     Dosage: DAILY ORAL
     Route: 048
     Dates: end: 20241226
  2. WELLBUTRIN XL [Concomitant]
     Active Substance: BUPROPION HYDROCHLORIDE
  3. ARMOUR THYROID [Concomitant]
     Active Substance: THYROID, PORCINE
  4. SERTRALINE [Suspect]
     Active Substance: SERTRALINE HYDROCHLORIDE

REACTIONS (2)
  - Suicidal ideation [None]
  - Dissociation [None]

NARRATIVE: CASE EVENT DATE: 20241226
